FAERS Safety Report 24379180 (Version 1)
Quarter: 2024Q3

REPORT INFORMATION
  Report Type: Spontaneous
  Country: GB (occurrence: GB)
  Receive Date: 20240930
  Receipt Date: 20240930
  Transmission Date: 20241017
  Serious: Yes (Disabling, Other)
  Sender: TORRENT
  Company Number: None

PATIENT
  Age: 39 Year
  Sex: Female

DRUGS (2)
  1. QUETIAPINE [Suspect]
     Active Substance: QUETIAPINE
     Indication: Post-traumatic stress disorder
     Dosage: 300MG
     Route: 065
     Dates: start: 20240916
  2. SERTRALINE [Concomitant]
     Active Substance: SERTRALINE HYDROCHLORIDE
     Indication: Post-traumatic stress disorder
     Dosage: UNKNOWN
     Route: 065

REACTIONS (6)
  - Poor quality sleep [Recovered/Resolved with Sequelae]
  - Sleep disorder [Unknown]
  - Stress [Unknown]
  - Terminal dribbling [Unknown]
  - Flashback [Unknown]
  - Somnolence [Unknown]

NARRATIVE: CASE EVENT DATE: 20240917
